FAERS Safety Report 6202318-9 (Version None)
Quarter: 2009Q2

REPORT INFORMATION
  Report Type: 
  Country: None (occurrence: None)
  Receive Date: 20090526
  Receipt Date: 20090518
  Transmission Date: 20091009
  Serious: Yes (Other)
  Sender: FDA-Public Use
  Company Number: IT-AVENTIS-200912658EU

PATIENT
  Age: 77 Year
  Sex: Female

DRUGS (5)
  1. TRENTAL [Suspect]
     Indication: ATRIAL FIBRILLATION
     Route: 048
     Dates: start: 20090318, end: 20090417
  2. COUMADIN [Concomitant]
  3. GLIBORAL [Concomitant]
  4. LANOXIN [Concomitant]
     Dates: start: 20090318
  5. LIORESAL [Concomitant]
     Indication: HYPERTONIA
     Route: 048
     Dates: start: 20090318, end: 20090416

REACTIONS (1)
  - EPILEPSY [None]
